FAERS Safety Report 13599377 (Version 1)
Quarter: 2017Q2

REPORT INFORMATION
  Report Type: Spontaneous
  Country: US (occurrence: US)
  Receive Date: 20170531
  Receipt Date: 20170531
  Transmission Date: 20170830
  Serious: Yes (Hospitalization, Other)
  Sender: FDA-Public Use
  Company Number: US-BAYER-2017-100111

PATIENT
  Sex: Female

DRUGS (7)
  1. BAYER ASPIRIN [Suspect]
     Active Substance: ASPIRIN
     Indication: SINUS ARRHYTHMIA
     Dosage: 83 MG, UNK
     Dates: start: 2004
  2. CLARITIN [Suspect]
     Active Substance: LORATADINE
     Dosage: UNK
     Dates: start: 1991
  3. LISINOPRIL. [Concomitant]
     Active Substance: LISINOPRIL
     Dosage: UNK
     Dates: start: 201401
  4. BAYER ASPIRIN [Suspect]
     Active Substance: ASPIRIN
     Indication: PARAESTHESIA
  5. GLICLAZIDE [Concomitant]
     Active Substance: GLICLAZIDE
     Dosage: UNK
     Dates: start: 1991
  6. VITAMIN D [Concomitant]
     Active Substance: CHOLECALCIFEROL
     Dosage: UNK
     Dates: start: 199909
  7. HYDROCHLOROTHIAZIDE. [Concomitant]
     Active Substance: HYDROCHLOROTHIAZIDE
     Dosage: UNK
     Dates: start: 2014

REACTIONS (20)
  - Bipolar disorder [Recovered/Resolved]
  - Vein disorder [Unknown]
  - Paraesthesia [Recovered/Resolved]
  - Hypertension [Recovered/Resolved]
  - Organ failure [Recovered/Resolved]
  - Urinary incontinence [Recovered/Resolved]
  - Dyspnoea [Unknown]
  - Anal incontinence [Recovered/Resolved]
  - Product use in unapproved indication [Unknown]
  - Shock [Recovered/Resolved]
  - Pulmonary embolism [Not Recovered/Not Resolved]
  - Thrombosis [Recovered/Resolved]
  - Chest pain [Recovered/Resolved]
  - Blood folate [Unknown]
  - Hepatic function abnormal [Not Recovered/Not Resolved]
  - Post-traumatic stress disorder [Recovered/Resolved]
  - Nephropathy [Not Recovered/Not Resolved]
  - Dyspnoea [Recovered/Resolved]
  - Sinus arrhythmia [Recovered/Resolved]
  - Organ failure [None]
